FAERS Safety Report 8520726-8 (Version None)
Quarter: 2012Q3

REPORT INFORMATION
  Report Type: 
  Country: None (occurrence: None)
  Receive Date: 20120705
  Receipt Date: 20120622
  Transmission Date: 20120928
  Serious: Yes (Hospitalization)
  Sender: FDA-Public Use
  Company Number: 2012SP020204

PATIENT
  Age: 53 Year
  Sex: Male

DRUGS (8)
  1. VICTRELIS (SHC-503034) [Suspect]
     Indication: HEPATITIS C
     Dosage: 800 MG, TID, PO
     Route: 048
     Dates: start: 20120220, end: 20120412
  2. COPEGUS [Suspect]
     Indication: HEPATITIS C
     Dosage: 800 MG, QD, PO
     Route: 048
     Dates: start: 20120123, end: 20120412
  3. POLAMIDON [Concomitant]
  4. REKAWAN [Concomitant]
  5. OMEPRAZOLE [Concomitant]
  6. DEKRISTOL [Concomitant]
  7. SUMATRIPTAN [Concomitant]
  8. PEGASYS [Suspect]
     Indication: HEPATITIS C
     Dosage: 180 MCG;QW; SC
     Route: 058
     Dates: start: 20120123, end: 20120412

REACTIONS (15)
  - CEREBRAL ATROPHY [None]
  - PROCALCITONIN INCREASED [None]
  - STAPHYLOCOCCAL BACTERAEMIA [None]
  - CEREBRAL MICROANGIOPATHY [None]
  - ASPARTATE AMINOTRANSFERASE INCREASED [None]
  - BONE MARROW FAILURE [None]
  - MEAN CELL HAEMOGLOBIN INCREASED [None]
  - PNEUMONIA [None]
  - FEBRILE NEUTROPENIA [None]
  - BLOOD GLUCOSE INCREASED [None]
  - BONE MARROW TOXICITY [None]
  - BLOOD POTASSIUM DECREASED [None]
  - GAMMA-GLUTAMYLTRANSFERASE INCREASED [None]
  - TOXICITY TO VARIOUS AGENTS [None]
  - ALANINE AMINOTRANSFERASE INCREASED [None]
